FAERS Safety Report 14383999 (Version 4)
Quarter: 2019Q4

REPORT INFORMATION
  Report Type: Spontaneous
  Country: US (occurrence: US)
  Receive Date: 20180115
  Receipt Date: 20191227
  Transmission Date: 20200122
  Serious: No
  Sender: FDA-Public Use
  Company Number: US-PFIZER INC-2018014290

PATIENT
  Age: 46 Year
  Sex: Female

DRUGS (1)
  1. TOLTERODINE TARTRATE. [Suspect]
     Active Substance: TOLTERODINE TARTRATE
     Indication: CYSTITIS INTERSTITIAL
     Dosage: UNK

REACTIONS (6)
  - Head discomfort [Unknown]
  - Palpitations [Unknown]
  - Drug hypersensitivity [Unknown]
  - Reaction to excipient [Unknown]
  - Drug ineffective for unapproved indication [Unknown]
  - Off label use [Unknown]
